FAERS Safety Report 8560527-8 (Version None)
Quarter: 2012Q3

REPORT INFORMATION
  Report Type: 
  Country: None (occurrence: None)
  Receive Date: 20120802
  Receipt Date: 20120726
  Transmission Date: 20120928
  Serious: Yes (Other)
  Sender: FDA-Public Use
  Company Number: US-VERTEX PHARMACEUTICALS INC.-AE-2011-001762

PATIENT
  Sex: Female
  Weight: 112.59 kg

DRUGS (10)
  1. PEGASYS [Concomitant]
     Indication: HEPATITIS C
     Route: 058
     Dates: start: 20110804
  2. RIBAVIRIN [Concomitant]
     Indication: HEPATITIS C
     Route: 048
     Dates: start: 20110804
  3. FUROSEMIDE [Concomitant]
     Route: 048
  4. SPIRONOLACTONE [Concomitant]
     Route: 048
  5. LEVOTHYROXINE SODIUM [Concomitant]
  6. POTASSIUM [Concomitant]
     Route: 048
  7. CARVEDILOL [Concomitant]
  8. INCIVEK [Suspect]
     Indication: HEPATITIS C
     Route: 048
     Dates: start: 20110804
  9. OMEPRAZOLE [Concomitant]
  10. VENLAFAXINE [Concomitant]

REACTIONS (7)
  - PANCYTOPENIA [None]
  - ANAEMIA [None]
  - SWELLING [None]
  - FATIGUE [None]
  - PULMONARY OEDEMA [None]
  - DYSPNOEA [None]
  - WHEEZING [None]
